FAERS Safety Report 8397875-0 (Version None)
Quarter: 2012Q2

REPORT INFORMATION
  Report Type: 
  Country: None (occurrence: None)
  Receive Date: 20120531
  Receipt Date: 20120525
  Transmission Date: 20120825
  Serious: Yes (Hospitalization)
  Sender: FDA-Public Use
  Company Number: PHHO2012US008105

PATIENT
  Sex: Male

DRUGS (26)
  1. ADVAIR DISKUS 100/50 [Concomitant]
     Dosage: UNK
     Dates: start: 20111013
  2. IMDUR [Concomitant]
     Dosage: UNK
     Dates: start: 20111007
  3. ISODRIL [Concomitant]
     Dosage: UNK
     Dates: start: 20111025
  4. POTASSIUM CHLORIDE [Concomitant]
     Dosage: UNK
     Dates: start: 20091118
  5. NORVASC [Concomitant]
     Dosage: UNK
     Dates: start: 20091019
  6. OMEGA-3 FATTY ACIDS [Concomitant]
     Dosage: UNK
     Dates: start: 20080902
  7. NIFEDIPINE [Concomitant]
     Dosage: UNK
     Dates: start: 20100331
  8. NEORAL [Suspect]
     Indication: RENAL TRANSPLANT
     Dosage: 375 MG, UNK
     Route: 048
     Dates: start: 20060924
  9. CELLCEPT [Suspect]
     Indication: RENAL TRANSPLANT
     Dosage: 1000 MG, UNK
     Dates: start: 20070810
  10. CALCITRIOL [Concomitant]
     Dosage: UNK
     Dates: start: 20081114
  11. COREG [Concomitant]
     Dosage: UNK
     Dates: start: 20111026
  12. DRISDOL [Concomitant]
     Dosage: UNK
     Dates: start: 20090520
  13. ASPIRIN [Concomitant]
     Dosage: UNK
     Dates: start: 20080902
  14. INSULIN [Concomitant]
     Dosage: UNK
     Dates: start: 20070725
  15. PREDNISONE TAB [Suspect]
     Dosage: 10 MG, UNK
     Dates: start: 20070725
  16. ALBUTEROL [Concomitant]
     Dosage: UNK
     Dates: start: 20111013
  17. LIPITOR [Concomitant]
     Dosage: UNK
     Dates: start: 20080306
  18. FUROSEMIDE [Concomitant]
     Dosage: UNK
     Dates: start: 20070725
  19. HYDRALAZINE HCL [Concomitant]
     Dosage: UNK
     Dates: start: 20090202
  20. LANTUS [Concomitant]
     Dosage: UNK
     Dates: start: 20070725
  21. ACETAMINOPHEN AND OXYCODONE HCL [Concomitant]
     Dosage: UNK
     Dates: start: 20091210
  22. SEROQUEL [Concomitant]
     Dosage: UNK
     Dates: start: 20070715
  23. MULTI-VITAMINS [Concomitant]
     Dosage: UNK
     Dates: start: 20070727
  24. PRAVACHOL [Concomitant]
     Dosage: UNK
     Dates: start: 20080902
  25. PROAIR HFA [Concomitant]
     Dosage: UNK
     Dates: start: 20111013
  26. ZOLOFT [Concomitant]
     Dosage: UNK
     Dates: start: 20070725

REACTIONS (3)
  - HEMIPARESIS [None]
  - CARDIAC FAILURE CONGESTIVE [None]
  - MUSCLE INJURY [None]
